FAERS Safety Report 22225177 (Version 2)
Quarter: 2023Q2

REPORT INFORMATION
  Report Type: Spontaneous
  Country: US (occurrence: US)
  Receive Date: 20230418
  Receipt Date: 20230503
  Transmission Date: 20230722
  Serious: Yes (Hospitalization)
  Sender: FDA-Public Use
  Company Number: US-BAYER-2023A048460

PATIENT
  Age: 52 Year
  Sex: Female
  Weight: 59.864 kg

DRUGS (7)
  1. ADEMPAS [Suspect]
     Active Substance: RIOCIGUAT
     Indication: Pulmonary arterial hypertension
  2. TREPROSTINIL [Suspect]
     Active Substance: TREPROSTINIL
     Indication: Pulmonary arterial hypertension
  3. ORENITRAM [Suspect]
     Active Substance: TREPROSTINIL
     Indication: Pulmonary arterial hypertension
     Dosage: 0.25 MG
  4. COREG [Concomitant]
     Active Substance: CARVEDILOL
     Dosage: 3.125 MG
  5. PRINIVIL [Concomitant]
     Active Substance: LISINOPRIL
     Dosage: 20 MG
  6. ZESTRIL [Concomitant]
     Active Substance: LISINOPRIL
     Dosage: 20 MG
  7. OXYGEN [Concomitant]
     Active Substance: OXYGEN

REACTIONS (17)
  - Skin discolouration [None]
  - Swelling [None]
  - Cellulitis [None]
  - Peripheral swelling [None]
  - Blood pressure fluctuation [None]
  - Right ventricular dilatation [None]
  - Erythema [None]
  - Cardiac output decreased [None]
  - Cellulitis [None]
  - Wound infection staphylococcal [None]
  - Dyspnoea exertional [None]
  - Vascular resistance pulmonary [None]
  - Headache [None]
  - Abscess [None]
  - Joint swelling [None]
  - Pulmonary hypertension [None]
  - Migraine [None]

NARRATIVE: CASE EVENT DATE: 20220101
